FAERS Safety Report 4372360-1 (Version None)
Quarter: 2004Q2

REPORT INFORMATION
  Report Type: 
  Country: None (occurrence: None)
  Receive Date: 20040602
  Receipt Date: 20040322
  Transmission Date: 20050107
  Serious: Yes (Death, Life-Threatening, Other)
  Sender: FDA-Public Use
  Company Number: 2004196577JP

PATIENT
  Age: 71 Year
  Sex: Female
  Weight: 57 kg

DRUGS (8)
  1. CAMPTOSAR [Suspect]
     Indication: LUNG NEOPLASM MALIGNANT
     Dosage: 89 MG, CYCLIC, IV DRIP
     Route: 041
     Dates: start: 20021107, end: 20021107
  2. CAMPTOSAR [Suspect]
     Indication: LUNG NEOPLASM MALIGNANT
     Dosage: 89 MG, CYCLIC, IV DRIP
     Route: 041
     Dates: start: 20021114, end: 20021114
  3. CISPLATIN [Suspect]
     Indication: LUNG NEOPLASM MALIGNANT
     Dosage: 23 MG, CYCLIC, IV DRIP
     Route: 041
     Dates: start: 20021107, end: 20021111
  4. LASIX [Concomitant]
  5. KYTRIL [Concomitant]
  6. BETAMETHASONE [Concomitant]
  7. NOVAMIN (PROCHLORPERAZINE) [Concomitant]
  8. AREDIA [Concomitant]

REACTIONS (8)
  - ASPIRATION [None]
  - DIARRHOEA [None]
  - GASTROINTESTINAL DISORDER [None]
  - MARKEDLY REDUCED DIETARY INTAKE [None]
  - PANCYTOPENIA [None]
  - PNEUMONIA [None]
  - SEPSIS [None]
  - VOMITING [None]
